FAERS Safety Report 25894331 (Version 2)
Quarter: 2025Q4

REPORT INFORMATION
  Report Type: Report from Study
  Country: US (occurrence: US)
  Receive Date: 20251008
  Receipt Date: 20251024
  Transmission Date: 20260118
  Serious: Yes (Hospitalization)
  Sender: ABBVIE
  Company Number: US-ABBVIE-6491480

PATIENT
  Sex: Female

DRUGS (1)
  1. SKYRIZI [Suspect]
     Active Substance: RISANKIZUMAB-RZAA
     Indication: Psoriasis
     Route: 058
     Dates: start: 20240801

REACTIONS (6)
  - Heart rate increased [Recovering/Resolving]
  - Skin ulcer [Recovering/Resolving]
  - Adverse reaction [Recovering/Resolving]
  - Atrial fibrillation [Recovering/Resolving]
  - Hypoacusis [Recovering/Resolving]
  - Asthenia [Recovering/Resolving]
